FAERS Safety Report 6243408-4 (Version None)
Quarter: 2009Q2

REPORT INFORMATION
  Report Type: 
  Country: None (occurrence: None)
  Receive Date: 20090622
  Receipt Date: 20090622
  Transmission Date: 20091009
  Serious: Yes (Other)
  Sender: FDA-Public Use
  Company Number: None

PATIENT
  Sex: Female
  Weight: 77.1115 kg

DRUGS (4)
  1. ZICAM NASAL GEL [Suspect]
     Indication: NASAL CONGESTION
     Dosage: 1  1  NASAL
     Route: 045
     Dates: start: 20090604, end: 20090604
  2. ZICAM NASAL GEL [Suspect]
     Indication: NASOPHARYNGITIS
     Dosage: 1  1  NASAL
     Route: 045
     Dates: start: 20090604, end: 20090604
  3. ZICAM GEL SWABS [Suspect]
     Indication: NASAL CONGESTION
     Dosage: 3 5 NASAL
     Route: 045
     Dates: start: 20090605, end: 20090610
  4. ZICAM GEL SWABS [Suspect]
     Indication: NASOPHARYNGITIS
     Dosage: 3 5 NASAL
     Route: 045
     Dates: start: 20090605, end: 20090610

REACTIONS (5)
  - AGEUSIA [None]
  - ANOSMIA [None]
  - LACRIMATION INCREASED [None]
  - NASAL DISCOMFORT [None]
  - THROAT IRRITATION [None]
